FAERS Safety Report 15528173 (Version 1)
Quarter: 2018Q4

REPORT INFORMATION
  Report Type: Spontaneous
  Country: US (occurrence: US)
  Receive Date: 20181020
  Receipt Date: 20181020
  Transmission Date: 20190205
  Serious: No
  Sender: FDA-Public Use
  Company Number: US-JNJFOC-20171222976

PATIENT
  Sex: Female

DRUGS (15)
  1. SUDAFED FOR COUGH AND COLD [Concomitant]
     Indication: NASOPHARYNGITIS
     Route: 065
  2. SUDAFED FOR COUGH AND COLD [Concomitant]
     Indication: NASOPHARYNGITIS
     Route: 065
  3. SUDAFED 12 HOUR [Suspect]
     Active Substance: PSEUDOEPHEDRINE HYDROCHLORIDE
     Indication: NASOPHARYNGITIS
     Route: 065
  4. SUDAFED FOR COUGH AND COLD [Concomitant]
     Indication: EAR PAIN
     Route: 065
  5. SUDAFED FOR COUGH AND COLD [Concomitant]
     Indication: SINUS CONGESTION
     Route: 065
  6. SUDAFED 12 HOUR [Suspect]
     Active Substance: PSEUDOEPHEDRINE HYDROCHLORIDE
     Indication: EAR PAIN
     Route: 065
  7. SUDAFED FOR COUGH AND COLD [Concomitant]
     Indication: SINUS CONGESTION
     Route: 065
  8. SUDAFED 12 HOUR [Suspect]
     Active Substance: PSEUDOEPHEDRINE HYDROCHLORIDE
     Indication: COUGH
     Route: 065
  9. SUDAFED FOR COUGH AND COLD [Concomitant]
     Indication: EAR PAIN
     Route: 065
  10. SUDAFED 12 HOUR [Suspect]
     Active Substance: PSEUDOEPHEDRINE HYDROCHLORIDE
     Indication: WHEEZING
     Route: 065
  11. SUDAFED 12 HOUR [Suspect]
     Active Substance: PSEUDOEPHEDRINE HYDROCHLORIDE
     Indication: SINUS CONGESTION
     Route: 065
  12. SUDAFED FOR COUGH AND COLD [Concomitant]
     Indication: COUGH
     Route: 065
  13. SUDAFED FOR COUGH AND COLD [Concomitant]
     Indication: WHEEZING
     Route: 065
  14. SUDAFED FOR COUGH AND COLD [Concomitant]
     Indication: WHEEZING
     Route: 065
  15. SUDAFED FOR COUGH AND COLD [Concomitant]
     Indication: COUGH
     Route: 065

REACTIONS (3)
  - Euphoric mood [Unknown]
  - Product use in unapproved indication [Unknown]
  - Off label use [Unknown]
